FAERS Safety Report 17300908 (Version 5)
Quarter: 2022Q1

REPORT INFORMATION
  Report Type: Spontaneous
  Country: US (occurrence: US)
  Receive Date: 20200122
  Receipt Date: 20220315
  Transmission Date: 20220423
  Serious: No
  Sender: FDA-Public Use
  Company Number: US-PFIZER INC-2019458847

PATIENT
  Age: 28 Year
  Sex: Male

DRUGS (3)
  1. INSPRA [Suspect]
     Active Substance: EPLERENONE
     Indication: Gitelman^s syndrome
     Dosage: 100 MG, 2X/DAY (2 TABLETS, TWICE DAILY)
     Route: 048
  2. INSPRA [Suspect]
     Active Substance: EPLERENONE
     Indication: Hypomagnesaemia
     Dosage: 50 MG, 2X/DAY
     Route: 048
  3. INSPRA [Suspect]
     Active Substance: EPLERENONE
     Indication: Hypokalaemia

REACTIONS (2)
  - Off label use [Unknown]
  - Drug ineffective for unapproved indication [Unknown]
